FAERS Safety Report 6667067-1 (Version None)
Quarter: 2010Q2

REPORT INFORMATION
  Report Type: 
  Country: None (occurrence: None)
  Receive Date: 20100402
  Receipt Date: 20100402
  Transmission Date: 20101027
  Serious: No
  Sender: FDA-Public Use
  Company Number: None

PATIENT
  Age: 36 Year
  Sex: Female
  Weight: 55.3388 kg

DRUGS (1)
  1. VIMPAT [Suspect]
     Indication: MIGRAINE
     Dosage: 100MG TWICE DAILY PO
     Route: 048
     Dates: start: 20091001, end: 20100331

REACTIONS (2)
  - HYPNAGOGIC HALLUCINATION [None]
  - HYPNOPOMPIC HALLUCINATION [None]
